FAERS Safety Report 14973073 (Version 2)
Quarter: 2018Q4

REPORT INFORMATION
  Report Type: Report from Study
  Country: BR (occurrence: BR)
  Receive Date: 20180605
  Receipt Date: 20181122
  Transmission Date: 20190204
  Serious: Yes (Hospitalization, Disabling)
  Sender: FDA-Public Use
  Company Number: BR-EMD SERONO-8142305

PATIENT
  Sex: Female

DRUGS (2)
  1. REBIF [Suspect]
     Active Substance: INTERFERON BETA-1A
     Indication: MULTIPLE SCLEROSIS
     Route: 058
     Dates: start: 20161024, end: 201805
  2. REBIF [Suspect]
     Active Substance: INTERFERON BETA-1A
     Dates: start: 201805

REACTIONS (10)
  - Gait disturbance [Not Recovered/Not Resolved]
  - Musculoskeletal stiffness [Recovered/Resolved]
  - Impaired reasoning [Unknown]
  - Product dose omission [Recovered/Resolved]
  - Skin abrasion [Unknown]
  - Tremor [Not Recovered/Not Resolved]
  - Fall [Unknown]
  - Product prescribing issue [Recovered/Resolved]
  - Mobility decreased [Recovering/Resolving]
  - Coordination abnormal [Not Recovered/Not Resolved]

NARRATIVE: CASE EVENT DATE: 2017
